FAERS Safety Report 5226898-5 (Version None)
Quarter: 2007Q1

REPORT INFORMATION
  Report Type: 
  Country: None (occurrence: None)
  Receive Date: 20070130
  Receipt Date: 20070122
  Transmission Date: 20070707
  Serious: Yes (Other)
  Sender: FDA-Public Use
  Company Number: 2007S1000006

PATIENT
  Age: 49 Year
  Sex: Male
  Weight: 77.0208 kg

DRUGS (1)
  1. ACITRETIN [Suspect]
     Indication: PSORIASIS
     Dosage: PO
     Route: 048
     Dates: start: 19970101, end: 20000101

REACTIONS (3)
  - DIABETES MELLITUS [None]
  - DIABETIC RETINOPATHY [None]
  - MICROALBUMINURIA [None]
